FAERS Safety Report 9206436 (Version 2)
Quarter: 2013Q2

REPORT INFORMATION
  Report Type: Spontaneous
  Country: US (occurrence: US)
  Receive Date: 20130403
  Receipt Date: 20130411
  Transmission Date: 20140414
  Serious: Yes (Hospitalization, Disabling, Other)
  Sender: FDA-Public Use
  Company Number: US-PFIZER INC-2013104922

PATIENT
  Age: 53 Year
  Sex: Male

DRUGS (6)
  1. NEURONTIN [Suspect]
     Indication: DIABETIC NEUROPATHY
     Dosage: 300 MG, 2X/DAY
     Dates: start: 2012
  2. TESTOSTERONE CIPIONATE [Suspect]
     Indication: DIABETES MELLITUS
     Dosage: UNK, WEEKLY (EVERY MONDAY)
  3. LIPITOR [Suspect]
     Indication: BLOOD CHOLESTEROL INCREASED
     Dosage: 40 MG, 1X/DAY
  4. ASPIRIN [Concomitant]
     Dosage: 81 MG, 1X/DAY
  5. HUMALOG [Concomitant]
     Indication: DIABETES MELLITUS
     Dosage: 20 IU, ONE TO THREE TIMES A DAY
  6. LANTUS [Concomitant]
     Indication: DIABETES MELLITUS
     Dosage: 80 IU, UNK

REACTIONS (9)
  - Blood disorder [Unknown]
  - Pain in extremity [Unknown]
  - Circulatory collapse [Unknown]
  - Glaucoma [Unknown]
  - Hypotension [Unknown]
  - Headache [Recovered/Resolved]
  - Visual impairment [Recovered/Resolved]
  - Dizziness [Unknown]
  - Feeling abnormal [Unknown]
